FAERS Safety Report 6266281-7 (Version None)
Quarter: 2009Q3

REPORT INFORMATION
  Report Type: 
  Country: None (occurrence: None)
  Receive Date: 20090713
  Receipt Date: 20090629
  Transmission Date: 20100115
  Serious: Yes (Hospitalization, Other)
  Sender: FDA-Public Use
  Company Number: PHHY2009AU26353

PATIENT
  Sex: Male

DRUGS (3)
  1. CLOZARIL [Suspect]
     Indication: SCHIZOPHRENIA
     Dosage: 150 MG, UNK
     Dates: start: 20090615
  2. CLOZARIL [Suspect]
     Dosage: 50 MG, UNK
     Dates: end: 20090629
  3. OLANZAPINE [Concomitant]
     Dosage: 10 MG, BID

REACTIONS (10)
  - C-REACTIVE PROTEIN INCREASED [None]
  - DIZZINESS [None]
  - EOSINOPHILIA [None]
  - MYOCARDITIS [None]
  - NAUSEA [None]
  - PSYCHOTIC DISORDER [None]
  - PYREXIA [None]
  - TACHYCARDIA [None]
  - TROPONIN INCREASED [None]
  - VOMITING [None]
